FAERS Safety Report 14284128 (Version 2)
Quarter: 2017Q4

REPORT INFORMATION
  Report Type: Spontaneous
  Country: US (occurrence: US)
  Receive Date: 20171214
  Receipt Date: 20171215
  Transmission Date: 20180321
  Serious: Yes (Other)
  Sender: FDA-Public Use
  Company Number: US-ASTRAZENECA-2017SF26595

PATIENT
  Sex: Male

DRUGS (1)
  1. LYNPARZA [Suspect]
     Active Substance: OLAPARIB
     Indication: PROSTATE CANCER
     Route: 048

REACTIONS (5)
  - Metastases to bone [Unknown]
  - Metastasis [Unknown]
  - Metastases to chest wall [Unknown]
  - Malignant neoplasm progression [Unknown]
  - Metastases to bladder [Unknown]
